FAERS Safety Report 9337164 (Version 2)
Quarter: 2013Q2

REPORT INFORMATION
  Report Type: Spontaneous
  Country: US (occurrence: US)
  Receive Date: 20130607
  Receipt Date: 20130621
  Transmission Date: 20140414
  Serious: No
  Sender: FDA-Public Use
  Company Number: US-PFIZER INC-2013170766

PATIENT
  Age: 53 Year
  Sex: Female
  Weight: 113 kg

DRUGS (7)
  1. EFFEXOR XR [Suspect]
     Indication: DEPRESSION
     Dosage: 75 MG, DAILY
     Dates: start: 2012, end: 201305
  2. EFFEXOR XR [Suspect]
     Dosage: 150 MG, DAILY
     Dates: start: 201305, end: 2013
  3. EFFEXOR XR [Suspect]
     Dosage: 150 MG, UNK
  4. ATENOLOL [Concomitant]
     Indication: BLOOD PRESSURE ABNORMAL
     Dosage: 25 MG, DAILY
  5. NEXIUM [Concomitant]
     Indication: GASTRIC DISORDER
     Dosage: 40 MG, DAILY
  6. NEURONTIN [Concomitant]
     Indication: INTERVERTEBRAL DISC PROTRUSION
     Dosage: 300 MG, 3X/DAY
  7. HYDROCHLOROTHIAZIDE [Concomitant]
     Indication: BLOOD PRESSURE ABNORMAL
     Dosage: UNK

REACTIONS (5)
  - Activities of daily living impaired [Recovered/Resolved]
  - Nausea [Recovered/Resolved]
  - Hypersomnia [Recovered/Resolved]
  - Sedation [Unknown]
  - Drug intolerance [Unknown]
